FAERS Safety Report 5017571-7 (Version None)
Quarter: 2006Q2

REPORT INFORMATION
  Report Type: 
  Country: None (occurrence: None)
  Receive Date: 20060601
  Receipt Date: 20060601
  Transmission Date: 20061013
  Serious: Yes (Hospitalization, Other)
  Sender: FDA-Public Use
  Company Number: None

PATIENT
  Age: 61 Year
  Sex: Male
  Weight: 125.5 kg

DRUGS (2)
  1. VENLAFAXINE HCL [Suspect]
     Indication: DEPRESSION
     Dosage: 225MG PO BID
     Route: 048
     Dates: start: 20060222, end: 20060307
  2. FLUOXETINE [Suspect]
     Indication: DEPRESSION
     Dosage: 60MG PO QAM
     Route: 048
     Dates: start: 20060307, end: 20060406

REACTIONS (2)
  - INCORRECT DOSE ADMINISTERED [None]
  - SEROTONIN SYNDROME [None]
